FAERS Safety Report 15927488 (Version 1)
Quarter: 2019Q1

REPORT INFORMATION
  Report Type: Spontaneous
  Country: US (occurrence: US)
  Receive Date: 20190206
  Receipt Date: 20190206
  Transmission Date: 20190417
  Serious: No
  Sender: FDA-Public Use
  Company Number: US-B. BRAUN MEDICAL INC.-2062199

PATIENT
  Sex: Female
  Weight: 64.4 kg

DRUGS (6)
  1. SODIUM CHLORIDE INJECTION USP 0264-7800-09 [Suspect]
     Active Substance: SODIUM CHLORIDE
  2. TYLENOL [Concomitant]
     Active Substance: ACETAMINOPHEN
  3. DAPTOMYCIN. [Concomitant]
     Active Substance: DAPTOMYCIN
  4. MOTRIN [Concomitant]
     Active Substance: IBUPROFEN
  5. NORMAL SALINE FLUSH [Concomitant]
     Active Substance: SODIUM CHLORIDE
  6. HEPARIN FLUSH [Concomitant]
     Active Substance: HEPARIN SODIUM

REACTIONS (1)
  - Chills [Recovered/Resolved]
